FAERS Safety Report 21656356 (Version 2)
Quarter: 2023Q1

REPORT INFORMATION
  Report Type: Report from Study
  Country: US (occurrence: US)
  Receive Date: 20221129
  Receipt Date: 20230321
  Transmission Date: 20230417
  Serious: No
  Sender: FDA-Public Use
  Company Number: US-ABBVIE-4181896

PATIENT
  Age: 30 Year
  Sex: Female

DRUGS (1)
  1. RINVOQ [Suspect]
     Active Substance: UPADACITINIB
     Indication: Colitis ulcerative
     Route: 048
     Dates: start: 20220902

REACTIONS (3)
  - Nasopharyngitis [Recovered/Resolved]
  - Viral infection [Recovering/Resolving]
  - Drug hypersensitivity [Recovering/Resolving]

NARRATIVE: CASE EVENT DATE: 20221001
